FAERS Safety Report 12095524 (Version 1)
Quarter: 2016Q1

REPORT INFORMATION
  Report Type: Not Available
  Country: CA (occurrence: CA)
  Receive Date: 20160219
  Receipt Date: 20160219
  Transmission Date: 20160526
  Serious: Yes (Other)
  Sender: FDA-Public Use
  Company Number: CA-PURDUE PHARMA-CAN-2016-0006487

PATIENT
  Age: 15 Year

DRUGS (2)
  1. MORPHINE SULFATE. [Suspect]
     Active Substance: MORPHINE SULFATE
     Indication: PAIN MANAGEMENT
     Dosage: UNK
     Route: 042
  2. CODEINE [Suspect]
     Active Substance: CODEINE
     Indication: PAIN MANAGEMENT
     Dosage: UNK
     Route: 065

REACTIONS (4)
  - Drug prescribing error [Unknown]
  - Oxygen saturation decreased [Unknown]
  - Incorrect dose administered [Unknown]
  - Bradypnoea [Unknown]
